FAERS Safety Report 10081417 (Version 1)
Quarter: 2014Q2

REPORT INFORMATION
  Report Type: Spontaneous
  Country: US (occurrence: None)
  Receive Date: 20140415
  Receipt Date: 20140415
  Transmission Date: 20141212
  Serious: Yes (Life-Threatening)
  Sender: FDA-Public Use
  Company Number: None

PATIENT
  Age: 43 Year
  Sex: Female
  Weight: 52 kg

DRUGS (1)
  1. TRIVORA [Suspect]
     Indication: PREMENSTRUAL HEADACHE
     Dosage: 1 TAB
     Route: 048

REACTIONS (2)
  - Chest pain [None]
  - Myocardial infarction [None]
